FAERS Safety Report 6938283-6 (Version None)
Quarter: 2010Q3

REPORT INFORMATION
  Report Type: 
  Country: None (occurrence: None)
  Receive Date: 20100824
  Receipt Date: 20100819
  Transmission Date: 20110219
  Serious: Yes (Death)
  Sender: FDA-Public Use
  Company Number: US-NOVOPROD-313453

PATIENT
  Sex: Male
  Weight: 108.84 kg

DRUGS (1)
  1. NOVOLOG [Suspect]
     Indication: OFF LABEL USE
     Dosage: UNK
     Route: 058
     Dates: start: 20100712, end: 20100712

REACTIONS (2)
  - COMPLETED SUICIDE [None]
  - INTENTIONAL DRUG MISUSE [None]
